FAERS Safety Report 9958754 (Version 1)
Quarter: 2014Q1

REPORT INFORMATION
  Report Type: Spontaneous
  Country: IT (occurrence: None)
  Receive Date: 20140228
  Receipt Date: 20140228
  Transmission Date: 20141002
  Serious: Yes (Hospitalization, Other)
  Sender: FDA-Public Use
  Company Number: AUR-APL-2014-01929

PATIENT
  Age: 73 Year
  Sex: Female

DRUGS (1)
  1. METFORMIN [Suspect]
     Indication: TYPE 2 DIABETES MELLITUS
     Dosage: 1 D

REACTIONS (17)
  - Gastrointestinal disorder [None]
  - Decreased appetite [None]
  - Asthenia [None]
  - Diarrhoea [None]
  - Vomiting [None]
  - Disorientation [None]
  - Dyspnoea [None]
  - Metabolic acidosis [None]
  - Blood potassium increased [None]
  - Kidney small [None]
  - Dialysis [None]
  - Procedural hypotension [None]
  - Blood creatinine increased [None]
  - Blood urea increased [None]
  - Renal cyst [None]
  - Renal impairment [None]
  - Anuria [None]
